FAERS Safety Report 14008725 (Version 2)
Quarter: 2017Q3

REPORT INFORMATION
  Report Type: Report from Study
  Country: IT (occurrence: IT)
  Receive Date: 20170925
  Receipt Date: 20170925
  Transmission Date: 20171128
  Serious: Yes (Death, Hospitalization)
  Sender: FDA-Public Use
  Company Number: IT-CELGENEUS-ITA-20170903880

PATIENT
  Age: 63 Year
  Sex: Female
  Weight: 52.5 kg

DRUGS (1)
  1. ABRAXANE [Suspect]
     Active Substance: PACLITAXEL
     Indication: SMALL CELL LUNG CANCER
     Route: 065
     Dates: start: 20170531, end: 20170704

REACTIONS (3)
  - Confusional state [Fatal]
  - Small cell lung cancer [Fatal]
  - Blood sodium decreased [Fatal]

NARRATIVE: CASE EVENT DATE: 20170711
